FAERS Safety Report 22114543 (Version 3)
Quarter: 2023Q4

REPORT INFORMATION
  Report Type: Report from Study
  Country: US (occurrence: US)
  Receive Date: 20230320
  Receipt Date: 20231228
  Transmission Date: 20240110
  Serious: Yes (Other)
  Sender: FDA-Public Use
  Company Number: US-002147023-NVSC2023US060255

PATIENT
  Sex: Female

DRUGS (1)
  1. AFINITOR [Suspect]
     Active Substance: EVEROLIMUS
     Indication: Breast cancer female
     Dosage: 7.5 MG, QD
     Route: 048

REACTIONS (4)
  - Breast cancer recurrent [Unknown]
  - Stomatitis [Unknown]
  - Product physical issue [Unknown]
  - Adverse drug reaction [Unknown]
